FAERS Safety Report 13998066 (Version 1)
Quarter: 2017Q3

REPORT INFORMATION
  Report Type: Spontaneous
  Country: US (occurrence: US)
  Receive Date: 20170921
  Receipt Date: 20170921
  Transmission Date: 20171128
  Serious: Yes (Other)
  Sender: FDA-Public Use
  Company Number: US-ALKERMES INC.-ALK-2017-003817

PATIENT
  Age: 31 Year
  Sex: Female
  Weight: 68.27 kg

DRUGS (5)
  1. XANAX [Concomitant]
     Active Substance: ALPRAZOLAM
     Indication: PRODUCT USED FOR UNKNOWN INDICATION
     Route: 065
  2. ADDERALL [Concomitant]
     Active Substance: AMPHETAMINE ASPARTATE\AMPHETAMINE SULFATE\DEXTROAMPHETAMINE SACCHARATE\DEXTROAMPHETAMINE SULFATE
     Indication: PRODUCT USED FOR UNKNOWN INDICATION
     Route: 065
  3. VIVITROL [Suspect]
     Active Substance: NALTREXONE
     Indication: DRUG USE DISORDER
     Dosage: 380 MG, QMO
     Route: 030
     Dates: start: 201704
  4. RANITIDINE. [Concomitant]
     Active Substance: RANITIDINE
     Indication: PRODUCT USED FOR UNKNOWN INDICATION
     Route: 065
  5. NEURONTIN [Concomitant]
     Active Substance: GABAPENTIN
     Indication: PRODUCT USED FOR UNKNOWN INDICATION
     Route: 065

REACTIONS (14)
  - Amenorrhoea [Unknown]
  - Medication error [Unknown]
  - Drug dependence [Unknown]
  - Therapeutic response decreased [Not Recovered/Not Resolved]
  - Stress [Unknown]
  - Procedural pain [Unknown]
  - Visual impairment [Recovered/Resolved]
  - Drug screen positive [Not Recovered/Not Resolved]
  - Injection site pain [Unknown]
  - Nasal septal operation [Unknown]
  - Feeling hot [Recovered/Resolved]
  - Injection site reaction [Unknown]
  - Injection site bruising [Unknown]
  - Rhinoplasty [Unknown]

NARRATIVE: CASE EVENT DATE: 2017
